FAERS Safety Report 6956416-2 (Version None)
Quarter: 2010Q3

REPORT INFORMATION
  Report Type: 
  Country: None (occurrence: None)
  Receive Date: 20100830
  Receipt Date: 20100819
  Transmission Date: 20110219
  Serious: Yes (Hospitalization, Other)
  Sender: FDA-Public Use
  Company Number: B0669844A

PATIENT
  Age: 36 Year
  Sex: Female
  Weight: 50 kg

DRUGS (1)
  1. ZOVIRAX [Suspect]
     Indication: HERPES ZOSTER
     Dosage: 2.5MGK PER DAY
     Route: 042
     Dates: start: 20090101

REACTIONS (5)
  - ALTERED STATE OF CONSCIOUSNESS [None]
  - APHASIA [None]
  - APRAXIA [None]
  - ENCEPHALITIS POST VARICELLA [None]
  - TOXIC ENCEPHALOPATHY [None]
